FAERS Safety Report 11111120 (Version 1)
Quarter: 2015Q2

REPORT INFORMATION
  Report Type: Spontaneous
  Country: US (occurrence: US)
  Receive Date: 20150513
  Receipt Date: 20150513
  Transmission Date: 20150821
  Serious: Yes (Other)
  Sender: FDA-Public Use
  Company Number: US-CELGENEUS-USA-2015050682

PATIENT
  Sex: Male

DRUGS (1)
  1. OTEZLA [Suspect]
     Active Substance: APREMILAST
     Indication: PRODUCT USED FOR UNKNOWN INDICATION
     Dosage: MAINTENANCE DOSE
     Route: 048
     Dates: start: 201503, end: 20150401

REACTIONS (5)
  - Tremor [Unknown]
  - Headache [Unknown]
  - Diarrhoea [Unknown]
  - Insomnia [Unknown]
  - Dyspepsia [Unknown]

NARRATIVE: CASE EVENT DATE: 2015
